FAERS Safety Report 12876581 (Version 1)
Quarter: 2016Q4

REPORT INFORMATION
  Report Type: Spontaneous
  Country: US (occurrence: US)
  Receive Date: 20161021
  Receipt Date: 20161021
  Transmission Date: 20170207
  Serious: Yes (Life-Threatening, Hospitalization)
  Sender: FDA-Public Use
  Company Number: None

PATIENT
  Age: 70 Year
  Sex: Male
  Weight: 85.6 kg

DRUGS (2)
  1. ASPIRIN. [Suspect]
     Active Substance: ASPIRIN
     Indication: CORONARY ARTERIAL STENT INSERTION
     Route: 048
     Dates: start: 20110101, end: 20161019
  2. PRASUGREL [Suspect]
     Active Substance: PRASUGREL
     Indication: CORONARY ARTERIAL STENT INSERTION
     Route: 048
     Dates: start: 20160830, end: 20160907

REACTIONS (3)
  - Subdural haematoma [None]
  - Haemorrhage [None]
  - Haemorrhage intracranial [None]

NARRATIVE: CASE EVENT DATE: 20161019
